FAERS Safety Report 21341653 (Version 2)
Quarter: 2022Q4

REPORT INFORMATION
  Report Type: Report from Study
  Country: US (occurrence: None)
  Receive Date: 20220916
  Receipt Date: 20221102
  Transmission Date: 20230113
  Serious: Yes (Death, Hospitalization)
  Sender: FDA-Public Use
  Company Number: US-ROCHE-3175481

PATIENT
  Age: 72 Year
  Sex: Male
  Weight: 107 kg

DRUGS (34)
  1. ATEZOLIZUMAB [Suspect]
     Active Substance: ATEZOLIZUMAB
     Indication: Non-small cell lung cancer metastatic
     Dosage: LAST STUDY TREATMENT ADMINISTRATIONS OF ATEZOLIZUMAB WERE ON 31/AUG/2022 AT C3D1.
     Route: 041
     Dates: start: 20220711, end: 20220831
  2. EFINEPTAKIN ALFA [Suspect]
     Active Substance: EFINEPTAKIN ALFA
     Indication: Non-small cell lung cancer metastatic
     Dosage: LAST STUDY TREATMENT ADMINISTRATIONS OF NT-I7 WERE ON 31/AUG/2022 AT C3D1.
     Route: 030
     Dates: start: 20220711, end: 20220831
  3. FARXIGA [Concomitant]
     Active Substance: DAPAGLIFLOZIN PROPANEDIOL
     Dates: start: 20220505
  4. LOSARTAN [Concomitant]
     Active Substance: LOSARTAN
     Dates: start: 2018
  5. JANUVIA [Concomitant]
     Active Substance: SITAGLIPTIN PHOSPHATE
     Dates: start: 2018
  6. ATORVASTATIN [Concomitant]
     Active Substance: ATORVASTATIN
     Dates: start: 2016
  7. KETOROLAC [Concomitant]
     Active Substance: KETOROLAC TROMETHAMINE
     Dosage: 15 MG/ML
     Dates: start: 2017
  8. VITAMIN D3 [Concomitant]
     Active Substance: CHOLECALCIFEROL
     Dates: start: 2022
  9. ASPIRIN [Concomitant]
     Active Substance: ASPIRIN
     Dates: start: 2018
  10. METOPROLOL [Concomitant]
     Active Substance: METOPROLOL
     Dates: start: 2022
  11. METOPROLOL [Concomitant]
     Active Substance: METOPROLOL
  12. BUMETANIDE [Concomitant]
     Active Substance: BUMETANIDE
     Dates: start: 20220722
  13. BUMETANIDE [Concomitant]
     Active Substance: BUMETANIDE
  14. ALLOPURINOL [Concomitant]
     Active Substance: ALLOPURINOL
     Dates: start: 20220722
  15. GLIPIZIDE [Concomitant]
     Active Substance: GLIPIZIDE
  16. OCTREOTIDE [Concomitant]
     Active Substance: OCTREOTIDE
     Dosage: 100MCG/ML
  17. STIOLTO RESPIMAT [Concomitant]
     Active Substance: OLODATEROL HYDROCHLORIDE\TIOTROPIUM BROMIDE MONOHYDRATE
     Dosage: 2.25-2.5?MCG/ACTUATION
  18. ALPHAGAN P [Concomitant]
     Active Substance: BRIMONIDINE TARTRATE
  19. BETIMOL [Concomitant]
     Active Substance: TIMOLOL
  20. DIAZEPAM [Concomitant]
     Active Substance: DIAZEPAM
     Dosage: 5 MG/ML
  21. HYDROMORPHONE [Concomitant]
     Active Substance: HYDROMORPHONE
  22. ALBUTEROL\IPRATROPIUM [Concomitant]
     Active Substance: ALBUTEROL\IPRATROPIUM
     Dosage: 0.5MG-0.3MG
  23. BISACODYL [Concomitant]
     Active Substance: BISACODYL
  24. GLYCOPYRROLATE [Concomitant]
     Active Substance: GLYCOPYRROLATE
     Dosage: 200 MCG/ML
  25. HALOPERIDOL LACTATE [Concomitant]
     Active Substance: HALOPERIDOL LACTATE
     Dosage: 5 MG/ML
  26. ONDANSETRON HCL [Concomitant]
     Active Substance: ONDANSETRON HYDROCHLORIDE
  27. INSULIN LISPRO [Concomitant]
     Active Substance: INSULIN LISPRO
  28. DEXTROSE [Concomitant]
     Active Substance: DEXTROSE
  29. CALCIUM GLUCONATE [Concomitant]
     Active Substance: CALCIUM GLUCONATE
  30. ALBUTEROL [Concomitant]
     Active Substance: ALBUTEROL
  31. KAYEXALATE [Concomitant]
     Active Substance: SODIUM POLYSTYRENE SULFONATE
  32. SODIUM BICARBONATE [Concomitant]
     Active Substance: SODIUM BICARBONATE
  33. FAMOTIDINE [Concomitant]
     Active Substance: FAMOTIDINE
  34. METHYLPREDNISOLONE [Concomitant]
     Active Substance: METHYLPREDNISOLONE

REACTIONS (2)
  - Oliguria [Recovering/Resolving]
  - Death [Fatal]

NARRATIVE: CASE EVENT DATE: 20220906
